FAERS Safety Report 5862302-1 (Version None)
Quarter: 2008Q3

REPORT INFORMATION
  Report Type: 
  Country: None (occurrence: None)
  Receive Date: 20080828
  Receipt Date: 20080710
  Transmission Date: 20090109
  Serious: Yes (Other)
  Sender: FDA-Public Use
  Company Number: BR-BAYER-200817383LA

PATIENT
  Age: 23 Year
  Sex: Female
  Weight: 80 kg

DRUGS (2)
  1. YASMIN [Suspect]
     Indication: ORAL CONTRACEPTION
     Route: 048
     Dates: start: 20080501, end: 20080703
  2. LACTULONA [Concomitant]
     Indication: CONSTIPATION
     Route: 048
     Dates: start: 20080601

REACTIONS (5)
  - ABDOMINAL PAIN UPPER [None]
  - NAUSEA [None]
  - PAIN [None]
  - SYNCOPE [None]
  - VOMITING [None]
